FAERS Safety Report 18282014 (Version 1)
Quarter: 2020Q3

REPORT INFORMATION
  Report Type: Spontaneous
  Country: US (occurrence: US)
  Receive Date: 20200917
  Receipt Date: 20200917
  Transmission Date: 20201103
  Serious: No
  Sender: FDA-Public Use
  Company Number: None

PATIENT
  Age: 60 Year
  Sex: Female

DRUGS (1)
  1. CAPECITABINE TAB 500MG [Suspect]
     Active Substance: CAPECITABINE
     Indication: APPENDIX CANCER
     Dosage: OTHER DOSE:2000MG/1500MG;?
     Route: 048
     Dates: start: 202001, end: 20200917

REACTIONS (3)
  - Diarrhoea [None]
  - Therapy change [None]
  - Off label use [None]

NARRATIVE: CASE EVENT DATE: 20200917
